FAERS Safety Report 13691693 (Version 1)
Quarter: 2017Q2

REPORT INFORMATION
  Report Type: Spontaneous
  Country: US (occurrence: US)
  Receive Date: 20170626
  Receipt Date: 20170626
  Transmission Date: 20170830
  Serious: No
  Sender: FDA-Public Use
  Company Number: US-ACTELION-A-US2017-155772

PATIENT
  Age: 50 Year
  Sex: Female

DRUGS (8)
  1. LUNESTA [Concomitant]
     Active Substance: ESZOPICLONE
  2. LYRICA [Concomitant]
     Active Substance: PREGABALIN
  3. SYNTHROID [Concomitant]
     Active Substance: LEVOTHYROXINE SODIUM
  4. TOPAMAX [Concomitant]
     Active Substance: TOPIRAMATE
  5. ADDERALL [Concomitant]
     Active Substance: AMPHETAMINE ASPARTATE\AMPHETAMINE SULFATE\DEXTROAMPHETAMINE SACCHARATE\DEXTROAMPHETAMINE SULFATE
  6. VALCHLOR [Suspect]
     Active Substance: MECHLORETHAMINE
     Indication: MYCOSIS FUNGOIDES
     Dosage: UNK
     Route: 061
     Dates: start: 20170520
  7. METOPROLOL TARTRATE. [Concomitant]
     Active Substance: METOPROLOL TARTRATE
  8. COZAAR [Concomitant]
     Active Substance: LOSARTAN POTASSIUM

REACTIONS (3)
  - Skin exfoliation [Unknown]
  - Condition aggravated [Unknown]
  - Pruritus [Unknown]
